FAERS Safety Report 12744822 (Version 2)
Quarter: 2016Q4

REPORT INFORMATION
  Report Type: Spontaneous
  Country: TW (occurrence: TW)
  Receive Date: 20160915
  Receipt Date: 20161029
  Transmission Date: 20170207
  Serious: Yes (Other)
  Sender: FDA-Public Use
  Company Number: TW-AMGEN-TWNSP2016123547

PATIENT
  Age: 52 Year
  Sex: Female

DRUGS (4)
  1. SULFASALAZINE. [Concomitant]
     Active Substance: SULFASALAZINE
     Indication: RHEUMATOID ARTHRITIS
     Dosage: 1 G, QD
     Route: 048
  2. PREDNISOLONE. [Concomitant]
     Active Substance: PREDNISOLONE
     Indication: RHEUMATOID ARTHRITIS
     Dosage: 2.5 MG, BID (IF NEEDED)
     Route: 048
  3. MTX [Concomitant]
     Active Substance: METHOTREXATE SODIUM
     Indication: RHEUMATOID ARTHRITIS
     Dosage: 7.5 MG, PER WEEK
     Route: 048
  4. ENBREL [Suspect]
     Active Substance: ETANERCEPT
     Indication: RHEUMATOID ARTHRITIS
     Dosage: 25 MG, TWICE PER WEEK
     Route: 058
     Dates: start: 20090420

REACTIONS (2)
  - Fall [Recovering/Resolving]
  - Wrist fracture [Recovered/Resolved]

NARRATIVE: CASE EVENT DATE: 20160821
